FAERS Safety Report 8688617 (Version 3)
Quarter: 2013Q2

REPORT INFORMATION
  Report Type: Spontaneous
  Country: US (occurrence: US)
  Receive Date: 20120727
  Receipt Date: 20130503
  Transmission Date: 20140414
  Serious: Yes (Other)
  Sender: FDA-Public Use
  Company Number: US-ASTRAZENECA-2011SE64546

PATIENT
  Age: 57 Year
  Sex: Female
  Weight: 88 kg

DRUGS (10)
  1. SEROQUEL [Suspect]
     Indication: BIPOLAR DISORDER
     Route: 048
     Dates: start: 2008
  2. SEROQUEL [Suspect]
     Indication: BIPOLAR DISORDER
     Route: 048
     Dates: start: 2010
  3. SEROQUEL [Suspect]
     Indication: BIPOLAR DISORDER
     Dosage: TWO TABLETS
     Route: 048
  4. SEROQUEL [Suspect]
     Indication: BIPOLAR DISORDER
     Dosage: ONE AND HALF TABLETS
     Route: 048
  5. SEROQUEL [Suspect]
     Indication: BIPOLAR DISORDER
     Route: 048
  6. LISINOPRIL [Concomitant]
     Indication: HYPERTENSION
     Route: 048
     Dates: start: 2008
  7. LAMICTAL [Concomitant]
     Indication: BIPOLAR DISORDER
     Dosage: TWO TIMES A DAY
     Dates: start: 2008
  8. CLONAZEPAM [Concomitant]
     Indication: ANXIETY
     Dates: start: 2008
  9. AMLODIPINE [Concomitant]
     Indication: HYPERTENSION
     Dates: start: 2008
  10. LEXAPRO [Concomitant]
     Indication: BIPOLAR DISORDER
     Dosage: EVERY DAY
     Dates: start: 2008

REACTIONS (5)
  - Neoplasm malignant [Unknown]
  - Poor quality sleep [Unknown]
  - Sleep disorder [Unknown]
  - Somnolence [Unknown]
  - Intentional drug misuse [Unknown]
